FAERS Safety Report 11773826 (Version 5)
Quarter: 2016Q2

REPORT INFORMATION
  Report Type: Spontaneous
  Country: CA (occurrence: CA)
  Receive Date: 20151124
  Receipt Date: 20160530
  Transmission Date: 20160815
  Serious: Yes (Other)
  Sender: FDA-Public Use
  Company Number: CA-AMGEN-CANSP2015122725

PATIENT
  Age: 57 Year
  Sex: Male
  Weight: 81.5 kg

DRUGS (12)
  1. EPREX [Concomitant]
     Active Substance: ERYTHROPOIETIN
     Dosage: 10000 UNIT, 4 TIMES/WK
     Route: 042
  2. ANDROGEL [Concomitant]
     Active Substance: TESTOSTERONE
     Dosage: UNK UNK, AS NECESSARY (Q 2 DAY STOP)
  3. CIALIS [Concomitant]
     Active Substance: TADALAFIL
     Dosage: 20 MG, UNK
     Route: 048
  4. VITAMIN B12 [Concomitant]
     Active Substance: CYANOCOBALAMIN
     Dosage: UNK UNK, QD
     Route: 048
  5. LORAZEPAM. [Concomitant]
     Active Substance: LORAZEPAM
     Dosage: 1 MG, AS NECESSARY (SL QHS)
  6. AMLODIPINE [Concomitant]
     Active Substance: AMLODIPINE BESYLATE
     Dosage: 2.5 MG, QD
     Route: 048
  7. REPLAVITE                          /00058902/ [Concomitant]
     Dosage: UNK UNK, BID
     Route: 048
  8. ALLOPURINOL. [Concomitant]
     Active Substance: ALLOPURINOL
     Dosage: 200 MG, ALTERNATE DAYS
     Route: 048
  9. ARANESP [Suspect]
     Active Substance: DARBEPOETIN ALFA
     Indication: PRODUCT USED FOR UNKNOWN INDICATION
     Dosage: 40 MG, EVERY 5-7 DAYS
     Route: 065
     Dates: start: 20070627, end: 20150702
  10. TRADJENTA [Concomitant]
     Active Substance: LINAGLIPTIN
  11. DEFEROXAMINE [Concomitant]
     Active Substance: DEFEROXAMINE\DEFEROXAMINE MESYLATE
     Dosage: 3 G, Q4WK
     Route: 042
  12. PREDNISONE. [Concomitant]
     Active Substance: PREDNISONE
     Dosage: 4 MG, QD
     Route: 048

REACTIONS (10)
  - Leukopenia [Unknown]
  - Nephrectomy [Unknown]
  - Erythropoiesis abnormal [Unknown]
  - Steatohepatitis [Unknown]
  - Platelet count decreased [Unknown]
  - Therapeutic response decreased [Unknown]
  - Hepatic steatosis [Unknown]
  - Refractory cytopenia with unilineage dysplasia [Not Recovered/Not Resolved]
  - Anti-erythropoietin antibody positive [Unknown]
  - Splenomegaly [Unknown]

NARRATIVE: CASE EVENT DATE: 201407
